FAERS Safety Report 4894527-6 (Version None)
Quarter: 2006Q1

REPORT INFORMATION
  Report Type: 
  Country: None (occurrence: None)
  Receive Date: 20060127
  Receipt Date: 20051230
  Transmission Date: 20060701
  Serious: Yes (Hospitalization)
  Sender: FDA-Public Use
  Company Number: FR-ABBOTT-06P-056-0320998-00

PATIENT
  Age: 82 Year
  Sex: Male

DRUGS (9)
  1. DEPAKENE [Suspect]
     Indication: EPILEPSY
     Route: 048
     Dates: start: 20040101, end: 20050701
  2. DEPAKENE [Suspect]
     Route: 048
     Dates: start: 20050701, end: 20051001
  3. DEPAKENE [Suspect]
     Route: 048
     Dates: start: 20051001, end: 20051118
  4. FUROSEMIDE [Suspect]
     Indication: ESSENTIAL HYPERTENSION
     Route: 048
     Dates: end: 20051117
  5. MEMANTINE HCL [Suspect]
     Indication: PSYCHOTIC DISORDER
     Route: 048
     Dates: start: 20041001, end: 20051117
  6. IRBESARTAN [Suspect]
     Indication: ESSENTIAL HYPERTENSION
     Route: 048
  7. GINKGO TREE LEAVES EXTRACT [Suspect]
     Indication: PSYCHOTIC DISORDER
     Route: 048
     Dates: end: 20051109
  8. PARACETAMOL [Concomitant]
     Indication: DRUG USE FOR UNKNOWN INDICATION
     Route: 048
  9. LAMOTRIGINE [Concomitant]
     Indication: EPILEPSY

REACTIONS (11)
  - AMMONIA INCREASED [None]
  - CEREBRAL ATROPHY [None]
  - CEREBRAL HAEMATOMA [None]
  - COGNITIVE DISORDER [None]
  - CONFUSIONAL STATE [None]
  - DIFFICULTY IN WALKING [None]
  - DISORIENTATION [None]
  - ESCHAR [None]
  - EXTRAPYRAMIDAL DISORDER [None]
  - EYELID PTOSIS [None]
  - WEIGHT DECREASED [None]
